FAERS Safety Report 7125830-7 (Version None)
Quarter: 2010Q4

REPORT INFORMATION
  Report Type: 
  Country: None (occurrence: None)
  Receive Date: 20101129
  Receipt Date: 20101115
  Transmission Date: 20110411
  Serious: Yes (Hospitalization, Other)
  Sender: FDA-Public Use
  Company Number: FR-ASTRAZENECA-2010SE43590

PATIENT
  Age: 21630 Day
  Sex: Male

DRUGS (1)
  1. DIPRIVAN [Suspect]
     Indication: ANAESTHESIA
     Route: 042
     Dates: start: 20100901, end: 20100901

REACTIONS (2)
  - HEPATITIS ACUTE [None]
  - PYREXIA [None]
